FAERS Safety Report 9059536 (Version 3)
Quarter: 2013Q4

REPORT INFORMATION
  Report Type: Report from Study
  Country: US (occurrence: US)
  Receive Date: 20130212
  Receipt Date: 20131211
  Transmission Date: 20140711
  Serious: Yes (Hospitalization)
  Sender: FDA-Public Use
  Company Number: US-BIOGENIDEC-2013BI012483

PATIENT
  Age: 53 Year
  Sex: Female
  Weight: 56 kg

DRUGS (11)
  1. TYSABRI [Suspect]
     Indication: MULTIPLE SCLEROSIS
     Route: 042
     Dates: start: 20080718
  2. BACLOFEN [Concomitant]
     Indication: MUSCLE SPASMS
  3. COLACE [Concomitant]
  4. CYMBALTA [Concomitant]
  5. VITAMIN D3 [Concomitant]
  6. AMPYRA [Concomitant]
  7. CLIMARA [Concomitant]
  8. BENZONATATE [Concomitant]
     Indication: COUGH
     Route: 048
     Dates: start: 20110211
  9. PRESCRIPTION ANTI-INFLAMMATORIES [Concomitant]
     Indication: OSTEOARTHRITIS
  10. CORTICOSTEROIDS [Concomitant]
     Indication: OSTEOARTHRITIS
  11. SUPARTZ [Concomitant]
     Indication: OSTEOARTHRITIS

REACTIONS (1)
  - Osteoarthritis [Recovered/Resolved]
